FAERS Safety Report 17944715 (Version 1)
Quarter: 2020Q3

REPORT INFORMATION
  Report Type: Report from Study
  Country: KR (occurrence: KR)
  Receive Date: 20200625
  Receipt Date: 20200625
  Transmission Date: 20201104
  Serious: Yes (Hospitalization)
  Sender: FDA-Public Use
  Company Number: KR-DSJP-DSU-2020-114920

PATIENT

DRUGS (5)
  1. TRASTUZUMAB DERUXTECAN. [Suspect]
     Active Substance: TRASTUZUMAB DERUXTECAN
     Indication: BREAST CANCER METASTATIC
     Dosage: 5.4 MG/KG, ONCE EVERY 3 WK
     Route: 042
     Dates: start: 20200428, end: 20200428
  2. TRASTUZUMAB DERUXTECAN. [Suspect]
     Active Substance: TRASTUZUMAB DERUXTECAN
     Dosage: 5.4 MG/KG, ONCE EVERY 3 WK
     Route: 042
     Dates: start: 20200519, end: 20200519
  3. PALONOSETRON. [Concomitant]
     Active Substance: PALONOSETRON HYDROCHLORIDE
     Indication: PREMEDICATION
     Dosage: 0.25 MG, ONCE EVERY 3 WK
     Route: 042
     Dates: start: 20200428
  4. CHLORPHENIRAMINE MALEATE. [Concomitant]
     Active Substance: CHLORPHENIRAMINE MALEATE
     Indication: PREMEDICATION
     Dosage: 4 MG, ONCE EVERY 3 WK
     Route: 042
     Dates: start: 20200428
  5. DICAMAX [Concomitant]
     Indication: OSTEOPOROSIS PROPHYLAXIS
     Dosage: 1 DF, QD
     Route: 048
     Dates: start: 20170516

REACTIONS (1)
  - Asthenia [Recovered/Resolved]

NARRATIVE: CASE EVENT DATE: 20200526
